FAERS Safety Report 6041159-2 (Version None)
Quarter: 2009Q1

REPORT INFORMATION
  Report Type: 
  Country: None (occurrence: None)
  Receive Date: 20090116
  Receipt Date: 20080908
  Transmission Date: 20090719
  Serious: No
  Sender: FDA-Public Use
  Company Number: US-BRISTOL-MYERS SQUIBB COMPANY-14328348

PATIENT
  Age: 58 Year
  Sex: Female

DRUGS (4)
  1. ABILIFY [Suspect]
     Indication: BIPOLAR II DISORDER
     Dosage: 5MG, HALF TABLET, IN MAY-2005 AND DOSE TITRATED TO 10MG QD IN JUN-2006.
     Dates: start: 20050501
  2. CYMBALTA [Concomitant]
  3. AMBIEN CR [Concomitant]
  4. NEURONTIN [Concomitant]

REACTIONS (2)
  - DYSKINESIA [None]
  - DYSTONIA [None]
